FAERS Safety Report 5772264-3 (Version None)
Quarter: 2008Q2

REPORT INFORMATION
  Report Type: 
  Country: None (occurrence: None)
  Receive Date: 20080613
  Receipt Date: 20080603
  Transmission Date: 20081010
  Serious: Yes (Other)
  Sender: FDA-Public Use
  Company Number: PHNU2008DE01979

PATIENT
  Sex: Female

DRUGS (1)
  1. AREDIA [Suspect]
     Indication: OSTEOPOROSIS
     Dosage: 60 MG, EVERY 3 MONTH
     Route: 042

REACTIONS (2)
  - CALCINOSIS [None]
  - CONDITION AGGRAVATED [None]
